FAERS Safety Report 11849786 (Version 2)
Quarter: 2018Q4

REPORT INFORMATION
  Report Type: Spontaneous
  Country: NL (occurrence: NL)
  Receive Date: 20151218
  Receipt Date: 20181211
  Transmission Date: 20190204
  Serious: Yes (Other)
  Sender: FDA-Public Use
  Company Number: PHHY2015NL161076

PATIENT
  Sex: Female

DRUGS (1)
  1. METOPROLOL. [Suspect]
     Active Substance: METOPROLOL
     Indication: PRODUCT USED FOR UNKNOWN INDICATION
     Dosage: UNK
     Route: 065

REACTIONS (3)
  - Confusional state [Recovering/Resolving]
  - Substance-induced psychotic disorder [Recovered/Resolved]
  - Paranoia [Recovering/Resolving]
